FAERS Safety Report 4553383-6 (Version None)
Quarter: 2005Q1

REPORT INFORMATION
  Report Type: 
  Country: None (occurrence: None)
  Receive Date: 20050112
  Receipt Date: 20041019
  Transmission Date: 20050727
  Serious: Yes (Other)
  Sender: FDA-Public Use
  Company Number: 2004AP06173

PATIENT
  Age: 72 Year
  Sex: Female

DRUGS (1)
  1. SEROQUEL [Suspect]
     Dosage: 300 MG DAILY PO
     Route: 048
     Dates: start: 20040720

REACTIONS (1)
  - WHITE BLOOD CELL COUNT DECREASED [None]
